FAERS Safety Report 4429799-5 (Version None)
Quarter: 2004Q3

REPORT INFORMATION
  Report Type: 
  Country: None (occurrence: None)
  Receive Date: 20040817
  Receipt Date: 20040806
  Transmission Date: 20050211
  Serious: Yes (Other)
  Sender: FDA-Public Use
  Company Number: 2004227509US

PATIENT
  Age: 71 Year
  Sex: Female
  Weight: 92.1 kg

DRUGS (2)
  1. CELEBREX [Suspect]
     Indication: ARTHRITIS
     Dosage: 200 MG, BID,ORAL
     Route: 048
     Dates: start: 20000101, end: 20000101
  2. PEPTO-BISMOL (BISMUTH SUBSALICYLATE) [Suspect]
     Indication: STOMACH DISCOMFORT
     Dosage: ORAL
     Route: 048

REACTIONS (17)
  - ARTHRALGIA [None]
  - ARTHRITIS [None]
  - ASTHENIA [None]
  - BLOOD IRON DECREASED [None]
  - BODY HEIGHT DECREASED [None]
  - CHONDROPATHY [None]
  - CONDITION AGGRAVATED [None]
  - DEHYDRATION [None]
  - FAECAL OCCULT BLOOD POSITIVE [None]
  - FAECES DISCOLOURED [None]
  - FEELING ABNORMAL [None]
  - HAEMORRHAGE [None]
  - KNEE ARTHROPLASTY [None]
  - MALAISE [None]
  - OSTEOPOROSIS [None]
  - REFUSAL OF TREATMENT BY PATIENT [None]
  - STOMACH DISCOMFORT [None]
